FAERS Safety Report 14803860 (Version 1)
Quarter: 2018Q2

REPORT INFORMATION
  Report Type: Spontaneous
  Country: US (occurrence: US)
  Receive Date: 20180416
  Receipt Date: 20180416
  Transmission Date: 20180711
  Serious: Yes (Other)
  Sender: FDA-Public Use
  Company Number: None

PATIENT

DRUGS (3)
  1. LEVOTHYROXINE. [Concomitant]
     Active Substance: LEVOTHYROXINE
  2. CYMBALTA [Concomitant]
     Active Substance: DULOXETINE HYDROCHLORIDE
  3. ZOLPIDEM [Suspect]
     Active Substance: ZOLPIDEM\ZOLPIDEM TARTRATE
     Indication: SLEEP DISORDER
     Dosage: ?          QUANTITY:1 TABLET(S); AT BEDTIME?
     Route: 048
     Dates: end: 20180318

REACTIONS (7)
  - Aggression [None]
  - Thinking abnormal [None]
  - Abnormal behaviour [None]
  - Amnesia [None]
  - Anger [None]
  - Mood swings [None]
  - Emotional disorder [None]

NARRATIVE: CASE EVENT DATE: 20180318
